FAERS Safety Report 24577299 (Version 1)
Quarter: 2024Q4

REPORT INFORMATION
  Report Type: Spontaneous
  Country: US (occurrence: US)
  Receive Date: 20241104
  Receipt Date: 20241104
  Transmission Date: 20250115
  Serious: No
  Sender: PERRIGO
  Company Number: US-PERRIGO-24US001093

PATIENT
  Age: 88 Year
  Sex: Male

DRUGS (1)
  1. POLYETHYLENE GLYCOL 3350 [Suspect]
     Active Substance: POLYETHYLENE GLYCOL 3350
     Indication: Bowel movement irregularity
     Dosage: 3/4 TSP, DAILY
     Route: 048

REACTIONS (4)
  - Gastric dilatation [Unknown]
  - Abdominal discomfort [Unknown]
  - Incorrect product administration duration [Unknown]
  - Underdose [Unknown]
